FAERS Safety Report 12945576 (Version 2)
Quarter: 2016Q4

REPORT INFORMATION
  Report Type: Report from Study
  Country: US (occurrence: US)
  Receive Date: 20161115
  Receipt Date: 20161226
  Transmission Date: 20170207
  Serious: No
  Sender: FDA-Public Use
  Company Number: PHEH2016US029813

PATIENT
  Sex: Male

DRUGS (1)
  1. COSENTYX [Suspect]
     Active Substance: SECUKINUMAB
     Indication: PSORIASIS
     Dosage: 300 MG, QMO
     Route: 065
     Dates: start: 201601

REACTIONS (15)
  - Dysphonia [Unknown]
  - Dizziness [Unknown]
  - Anxiety [Unknown]
  - Oral mucosal eruption [Unknown]
  - Aphasia [Not Recovered/Not Resolved]
  - Cheilitis [Unknown]
  - Dysphagia [Recovered/Resolved]
  - Lip swelling [Not Recovered/Not Resolved]
  - Depression [Unknown]
  - Candida infection [Unknown]
  - Chapped lips [Unknown]
  - Cough [Recovered/Resolved]
  - Oropharyngeal pain [Unknown]
  - Weight decreased [Recovered/Resolved]
  - Mood altered [Unknown]
